FAERS Safety Report 26109560 (Version 1)
Quarter: 2025Q4

REPORT INFORMATION
  Report Type: Spontaneous
  Country: US (occurrence: US)
  Receive Date: 20251201
  Receipt Date: 20251201
  Transmission Date: 20260118
  Serious: Yes (Other)
  Sender: NOVO NORDISK
  Company Number: US-NOVOPROD-1569621

PATIENT
  Sex: Male

DRUGS (1)
  1. OZEMPIC [Suspect]
     Active Substance: SEMAGLUTIDE
     Indication: Product used for unknown indication
     Dosage: UNK

REACTIONS (11)
  - Bipolar disorder [Unknown]
  - Suicidal ideation [Unknown]
  - Anxiety [Unknown]
  - Gastrointestinal disorder [Unknown]
  - Asthenia [Unknown]
  - Balance disorder [Unknown]
  - Insomnia [Unknown]
  - Decreased appetite [Unknown]
  - Fall [Unknown]
  - Amnesia [Unknown]
  - Weight decreased [Unknown]
